FAERS Safety Report 6945914-3 (Version None)
Quarter: 2010Q3

REPORT INFORMATION
  Report Type: 
  Country: None (occurrence: None)
  Receive Date: 20100827
  Receipt Date: 20100820
  Transmission Date: 20110219
  Serious: Yes (Hospitalization)
  Sender: FDA-Public Use
  Company Number: A0872198A

PATIENT
  Sex: Male
  Weight: 78.5 kg

DRUGS (1)
  1. OFATUMUMAB [Suspect]
     Route: 042
     Dates: start: 20100628

REACTIONS (2)
  - HYPOTENSION [None]
  - UROSEPSIS [None]
